FAERS Safety Report 25894532 (Version 1)
Quarter: 2025Q4

REPORT INFORMATION
  Report Type: Spontaneous
  Country: US (occurrence: US)
  Receive Date: 20251008
  Receipt Date: 20251008
  Transmission Date: 20260118
  Serious: Yes (Other)
  Sender: BOEHRINGER INGELHEIM
  Company Number: US-Komodo Health-a23aa00000AZb5NAAT

PATIENT
  Age: 50 Year
  Sex: Male

DRUGS (4)
  1. TRADJENTA [Suspect]
     Active Substance: LINAGLIPTIN
     Indication: Glucose tolerance impaired
     Dosage: DAILY DOSE: 5 MILLIGRAM(S)
     Dates: start: 20250717, end: 20250922
  2. LISINOPRIL [Concomitant]
     Active Substance: LISINOPRIL
     Indication: Hypertension
  3. HYDROCHLOROTHIAZIDE [Concomitant]
     Active Substance: HYDROCHLOROTHIAZIDE
     Indication: Hypertension
     Dosage: 12.5MG
  4. AMOXICILLIN\CLAVULANIC ACID [Concomitant]
     Active Substance: AMOXICILLIN\CLAVULANIC ACID
     Indication: Cyst

REACTIONS (17)
  - Suicidal ideation [Recovering/Resolving]
  - Back pain [Recovered/Resolved]
  - Neck pain [Recovering/Resolving]
  - Arthralgia [Recovered/Resolved]
  - Headache [Recovering/Resolving]
  - Disturbance in attention [Recovering/Resolving]
  - Hidradenitis [Not Recovered/Not Resolved]
  - Exophthalmos [Unknown]
  - Dry eye [Unknown]
  - Disorientation [Recovering/Resolving]
  - Mental impairment [Unknown]
  - Emotional distress [Unknown]
  - Nerve compression [Unknown]
  - Dizziness [Unknown]
  - Feeling abnormal [Unknown]
  - Hyperhidrosis [Unknown]
  - Off label use [Unknown]

NARRATIVE: CASE EVENT DATE: 20250701
